FAERS Safety Report 18458613 (Version 2)
Quarter: 2020Q4

REPORT INFORMATION
  Report Type: Spontaneous
  Country: AR (occurrence: AR)
  Receive Date: 20201103
  Receipt Date: 20201111
  Transmission Date: 20210114
  Serious: Yes (Hospitalization)
  Sender: FDA-Public Use
  Company Number: AR-PFIZER INC-2020421486

PATIENT
  Age: 59 Year
  Sex: Female

DRUGS (1)
  1. IBRANCE [Suspect]
     Active Substance: PALBOCICLIB
     Indication: BREAST CANCER METASTATIC
     Dosage: 125 MG, CYCLIC (DAILY, SCHEME 3X1)
     Dates: start: 20190327

REACTIONS (5)
  - Visual acuity reduced [Unknown]
  - Seizure [Unknown]
  - Neoplasm progression [Unknown]
  - Hyperglycaemia [Unknown]
  - Memory impairment [Unknown]

NARRATIVE: CASE EVENT DATE: 20201105
